FAERS Safety Report 20686298 (Version 1)
Quarter: 2022Q2

REPORT INFORMATION
  Report Type: Spontaneous
  Country: FR (occurrence: FR)
  Receive Date: 20220407
  Receipt Date: 20220407
  Transmission Date: 20220721
  Serious: No
  Sender: FDA-Public Use
  Company Number: FR-JAZZ-2022-FR-007286

PATIENT

DRUGS (2)
  1. SUNOSI [Suspect]
     Active Substance: SOLRIAMFETOL
     Indication: Sleep apnoea syndrome
     Dosage: 37.5 MILLIGRAM FOR 40 DAYS
  2. SUNOSI [Suspect]
     Active Substance: SOLRIAMFETOL
     Indication: Somnolence

REACTIONS (2)
  - Hypomania [Unknown]
  - Depression [Unknown]
